FAERS Safety Report 21703841 (Version 2)
Quarter: 2022Q4

REPORT INFORMATION
  Report Type: Other
  Country: DE (occurrence: DE)
  Receive Date: 20221209
  Receipt Date: 20221209
  Transmission Date: 20230112
  Serious: Yes (Other)
  Sender: FDA-Public Use
  Company Number: DE-MACLEODS PHARMACEUTICALS LTD. KAZAKHSTAN-MAC2022038628

PATIENT

DRUGS (1)
  1. CLOPIDOGREL [Suspect]
     Active Substance: CLOPIDOGREL BISULFATE
     Indication: Stent placement
     Dosage: 750 MILLIGRAM, QD (675 MG ONCE AT 11:00 A.M. 75 MG ONCE AT 7:00 P.M)
     Route: 048
     Dates: start: 20221110, end: 20221110

REACTIONS (1)
  - Hallucination, visual [Recovered/Resolved]
